FAERS Safety Report 13192692 (Version 1)
Quarter: 2017Q1

REPORT INFORMATION
  Report Type: Spontaneous
  Country: US (occurrence: US)
  Receive Date: 20170207
  Receipt Date: 20170207
  Transmission Date: 20170428
  Serious: Yes (Life-Threatening, Hospitalization)
  Sender: FDA-Public Use
  Company Number: None

PATIENT
  Age: 65 Year
  Sex: Female
  Weight: 81.65 kg

DRUGS (8)
  1. MAGNESIUM [Concomitant]
     Active Substance: MAGNESIUM
  2. ESTER C [Concomitant]
  3. CACITRATE [Concomitant]
  4. FISH OIL [Concomitant]
     Active Substance: FISH OIL
  5. VALSARTAN. [Concomitant]
     Active Substance: VALSARTAN
  6. CYMBALTA [Concomitant]
     Active Substance: DULOXETINE HYDROCHLORIDE
  7. LOSARTAN 50MG TABLETS [Suspect]
     Active Substance: LOSARTAN
     Indication: HYPERTENSION
     Route: 048
     Dates: start: 20161201, end: 20161228
  8. LOVASTATIN. [Concomitant]
     Active Substance: LOVASTATIN

REACTIONS (2)
  - Dizziness [None]
  - Hemiplegia [None]

NARRATIVE: CASE EVENT DATE: 20161228
